FAERS Safety Report 7334364-6 (Version None)
Quarter: 2011Q1

REPORT INFORMATION
  Report Type: 
  Country: None (occurrence: None)
  Receive Date: 20110307
  Receipt Date: 20110112
  Transmission Date: 20110831
  Serious: No
  Sender: FDA-Public Use
  Company Number: US-KINGPHARMUSA00001-K201100048

PATIENT
  Sex: Female

DRUGS (2)
  1. EMBEDA [Suspect]
     Dosage: 80 MG, QD
     Route: 048
     Dates: start: 20091201, end: 20101101
  2. EMBEDA [Suspect]
     Indication: PAIN
     Dosage: 50 MG, QD
     Route: 048
     Dates: start: 20101101, end: 20110101

REACTIONS (2)
  - DRUG DIVERSION [None]
  - DRUG INEFFECTIVE [None]
